FAERS Safety Report 5054296-6 (Version None)
Quarter: 2006Q3

REPORT INFORMATION
  Report Type: 
  Country: None (occurrence: None)
  Receive Date: 20060713
  Receipt Date: 20060627
  Transmission Date: 20061208
  Serious: No
  Sender: FDA-Public Use
  Company Number: 34899

PATIENT

DRUGS (1)
  1. BSS PLUS [Suspect]
     Indication: SURGERY

REACTIONS (3)
  - CULTURE POSITIVE [None]
  - EYE INFECTION INTRAOCULAR [None]
  - LABORATORY TEST ABNORMAL [None]
